FAERS Safety Report 21670683 (Version 3)
Quarter: 2023Q2

REPORT INFORMATION
  Report Type: Spontaneous
  Country: IT (occurrence: IT)
  Receive Date: 20221202
  Receipt Date: 20230606
  Transmission Date: 20230722
  Serious: Yes (Other)
  Sender: FDA-Public Use
  Company Number: IT-TOLMAR, INC.-22IT037747

PATIENT
  Age: 65 Year
  Sex: Male

DRUGS (2)
  1. ELIGARD [Suspect]
     Active Substance: LEUPROLIDE ACETATE
     Indication: Prostate cancer
     Dosage: UNK
  2. ENZALUTAMIDE [Suspect]
     Active Substance: ENZALUTAMIDE
     Indication: Prostate cancer
     Dosage: UNK

REACTIONS (9)
  - Bladder transitional cell carcinoma [Unknown]
  - Follicular cystitis [Unknown]
  - Malignant neoplasm progression [Unknown]
  - Escherichia urinary tract infection [Unknown]
  - Suprapubic pain [Unknown]
  - Pelvic pain [Unknown]
  - Lymphadenopathy [Unknown]
  - Fistula [Unknown]
  - Urinary tract infection [Unknown]
